FAERS Safety Report 20036067 (Version 3)
Quarter: 2022Q1

REPORT INFORMATION
  Report Type: Report from Study
  Country: US (occurrence: US)
  Receive Date: 20211105
  Receipt Date: 20220225
  Transmission Date: 20220423
  Serious: No
  Sender: FDA-Public Use
  Company Number: US-NOVARTISTESTPH-NVSC2021US252471

PATIENT
  Sex: Male

DRUGS (1)
  1. ENTRESTO [Suspect]
     Active Substance: SACUBITRIL\VALSARTAN
     Indication: Product used for unknown indication
     Dosage: 24/26MG
     Route: 065

REACTIONS (6)
  - Dyspnoea [Unknown]
  - Ejection fraction decreased [Unknown]
  - Arthritis [Unknown]
  - Heart rate abnormal [Unknown]
  - Echocardiogram [Unknown]
  - Product dose omission issue [Unknown]
